FAERS Safety Report 9577644 (Version 2)
Quarter: 2013Q4

REPORT INFORMATION
  Report Type: Spontaneous
  Country: US (occurrence: US)
  Receive Date: 20131001
  Receipt Date: 20131001
  Transmission Date: 20140711
  Serious: No
  Sender: FDA-Public Use
  Company Number: US-AMGEN-USASP2013001604

PATIENT
  Age: 40 Year
  Sex: Female

DRUGS (5)
  1. ENBREL [Suspect]
     Indication: PSORIASIS
     Dosage: 50 MG, 2 TIMES/WK
     Route: 058
     Dates: start: 20121218
  2. METHOTREXATE [Concomitant]
     Dosage: 15 MG, QWK
     Route: 048
  3. PANTOPRAZOLE [Concomitant]
     Dosage: UNK
     Route: 048
  4. LEVOTHYROXIN [Concomitant]
     Dosage: UNK
     Route: 048
  5. VITAMIN D                          /00107901/ [Concomitant]
     Dosage: UNK
     Route: 048

REACTIONS (2)
  - Dry mouth [Not Recovered/Not Resolved]
  - Injection site pain [Not Recovered/Not Resolved]
